FAERS Safety Report 9105379 (Version 1)
Quarter: 2013Q1

REPORT INFORMATION
  Report Type: Spontaneous
  Country: US (occurrence: US)
  Receive Date: 20130220
  Receipt Date: 20130220
  Transmission Date: 20140127
  Serious: Yes (Death)
  Sender: FDA-Public Use
  Company Number: US-GLAXOSMITHKLINE-B0868822A

PATIENT
  Age: 50 Year
  Sex: Male

DRUGS (9)
  1. SULFAMETHOXAZOLE + TRIMETHOPRIM [Suspect]
     Route: 065
  2. ZOLPIDEM [Suspect]
     Route: 065
  3. CARISOPRODOL [Suspect]
  4. ACETAMINOPHEN [Suspect]
  5. DULOXETINE [Suspect]
  6. HYDROCODONE [Suspect]
  7. DIHYDROCODEINE [Suspect]
  8. LAMOTRIGINE [Suspect]
  9. DIPHENHYDRAMINE [Suspect]

REACTIONS (1)
  - Accidental overdose [Fatal]
